FAERS Safety Report 13422651 (Version 2)
Quarter: 2017Q2

REPORT INFORMATION
  Report Type: Report from Study
  Country: KR (occurrence: KR)
  Receive Date: 20170410
  Receipt Date: 20170428
  Transmission Date: 20170830
  Serious: Yes (Hospitalization)
  Sender: FDA-Public Use
  Company Number: KR-VIIV HEALTHCARE LIMITED-KR2017GSK049399

PATIENT
  Age: 42 Year
  Sex: Male
  Weight: 60 kg

DRUGS (35)
  1. PETHIDINE HYDROCHLORIDE INJECTION [Concomitant]
     Indication: PANCREATITIS CHRONIC
  2. CEFTRIAXONE. [Concomitant]
     Active Substance: CEFTRIAXONE
     Indication: PYREXIA
     Dosage: UNK
     Dates: start: 20170224, end: 20170226
  3. FOLIC ACID. [Concomitant]
     Active Substance: FOLIC ACID
     Indication: ANAEMIA
     Dosage: 1 MG, QD
     Route: 048
     Dates: start: 20170225
  4. ABACAVIR SULFATE + LAMIVUDINE [Suspect]
     Active Substance: ABACAVIR SULFATE\LAMIVUDINE
     Indication: HIV INFECTION
     Dosage: 600/300 MG, QD
     Route: 048
     Dates: start: 20160621
  5. JANUMET XR [Concomitant]
     Active Substance: METFORMIN HYDROCHLORIDE\SITAGLIPTIN PHOSPHATE
     Indication: TYPE 2 DIABETES MELLITUS
     Dosage: UNK
     Route: 048
     Dates: start: 20160901
  6. XALATAN [Concomitant]
     Active Substance: LATANOPROST
     Indication: GLAUCOMA
     Dosage: UNK
     Dates: start: 20130516
  7. MUTERAN [Concomitant]
     Active Substance: ACETYLCYSTEINE
     Indication: NEPHROPATHY
     Dosage: UNK
     Route: 042
     Dates: start: 20170226, end: 20170305
  8. SETOPEN ER [Concomitant]
     Indication: ANALGESIC THERAPY
     Route: 048
  9. SETOPEN ER [Concomitant]
     Indication: PYREXIA
  10. TAZOPERAN INJECTION [Concomitant]
     Indication: PANCREATITIS CHRONIC
     Dosage: UNK
     Route: 042
     Dates: start: 20170226, end: 20170322
  11. DIFLUCAN [Concomitant]
     Active Substance: FLUCONAZOLE
     Indication: ANTIFUNGAL PROPHYLAXIS
     Dosage: UNK
     Route: 042
     Dates: start: 20170306, end: 20170307
  12. VANCO INJECTION [Concomitant]
     Indication: PANCREATIC ABSCESS
     Dosage: 1 G, BID
     Route: 042
     Dates: start: 20170306, end: 20170309
  13. LIPIDIL SUPRA [Concomitant]
     Indication: HYPERTRIGLYCERIDAEMIA
     Dosage: 160 MG, QD
     Route: 048
     Dates: start: 20140814
  14. GABAPENTIN. [Concomitant]
     Active Substance: GABAPENTIN
     Indication: HYPOVITAMINOSIS
     Dosage: 100 MG, QD
     Route: 048
     Dates: start: 20170225, end: 20170226
  15. TRIDOL [Concomitant]
     Active Substance: TRAMADOL HYDROCHLORIDE
     Indication: PAIN
     Dosage: 50 MG, UNK
     Route: 042
     Dates: start: 20170225, end: 20170307
  16. TRIZELE [Concomitant]
     Active Substance: METRONIDAZOLE
     Indication: PANCREATITIS CHRONIC
     Dosage: 500 MG, QD
     Route: 042
     Dates: start: 20170226, end: 20170226
  17. SETOPEN ER [Concomitant]
     Indication: PANCREATITIS CHRONIC
  18. FOIPAN [Concomitant]
     Active Substance: CAMOSTAT MESYLATE
     Indication: PANCREATITIS CHRONIC
     Dosage: UNK
     Route: 048
     Dates: start: 20170303, end: 20170322
  19. FUTHAN [Concomitant]
     Active Substance: NAFAMOSTAT MESYLATE
     Indication: PANCREATITIS CHRONIC
     Dosage: 10 MG, BID
     Route: 042
     Dates: start: 20170223, end: 20170224
  20. MEGESTROL ACETATE. [Concomitant]
     Active Substance: MEGESTROL ACETATE
     Indication: DECREASED APPETITE
     Dosage: 20 ML, QD
     Route: 048
     Dates: start: 20170225, end: 20170226
  21. THIAMINE HYDROCHLORIDE. [Concomitant]
     Active Substance: THIAMINE HYDROCHLORIDE
     Indication: HYPOVITAMINOSIS
     Dosage: 10 MG, QD
     Route: 048
     Dates: start: 20170225
  22. POTASSIUM CHLORIDE. [Concomitant]
     Active Substance: POTASSIUM CHLORIDE
     Indication: HYPOKALAEMIA
     Dosage: UNK
     Dates: start: 20170303, end: 20170303
  23. SEROQUEL [Concomitant]
     Active Substance: QUETIAPINE FUMARATE
     Indication: DELIRIUM
     Dosage: 100 MG, QD
     Route: 048
     Dates: start: 20170225, end: 20170321
  24. ALPHAGAN P EYE DROPS [Concomitant]
     Indication: GLAUCOMA
     Dosage: UNK
     Dates: start: 20140321
  25. PETHIDINE HYDROCHLORIDE INJECTION [Concomitant]
     Indication: PAIN
     Dosage: 25 MG, UNK
     Route: 042
     Dates: start: 20170223, end: 20170225
  26. TRIDOL [Concomitant]
     Active Substance: TRAMADOL HYDROCHLORIDE
     Indication: PANCREATITIS CHRONIC
  27. MEGESTROL ACETATE. [Concomitant]
     Active Substance: MEGESTROL ACETATE
     Indication: PANCREATITIS CHRONIC
  28. PHOSTEN [Concomitant]
     Indication: HYPOPHOSPHATAEMIA
     Dosage: UNK
     Route: 042
     Dates: start: 20170227, end: 20170307
  29. POSPENEM [Concomitant]
     Indication: PANCREATIC ABSCESS
     Dosage: UNK
     Route: 042
     Dates: start: 20170303, end: 20170312
  30. MAGNESIUM [Concomitant]
     Active Substance: MAGNESIUM
     Indication: DELIRIUM TREMENS
     Dosage: 5 G, QD
     Route: 042
     Dates: start: 20170328, end: 20170328
  31. ISENTRESS [Concomitant]
     Active Substance: RALTEGRAVIR POTASSIUM
     Indication: HIV INFECTION
     Dosage: 400 MG, BID
     Route: 048
     Dates: start: 20120823
  32. MECKOOL [Concomitant]
     Indication: GASTRITIS PROPHYLAXIS
     Dosage: 10 MG, UNK
     Route: 042
     Dates: start: 20170223, end: 20170223
  33. CEFTRIAXONE. [Concomitant]
     Active Substance: CEFTRIAXONE
     Indication: PANCREATITIS CHRONIC
  34. SMECTA SUSPENSION [Concomitant]
     Indication: DIARRHOEA
     Dosage: UNK
     Route: 048
     Dates: start: 20170301, end: 20170322
  35. AUGMENTIN [Concomitant]
     Active Substance: AMOXICILLIN\CLAVULANATE POTASSIUM
     Indication: PANCREATIC ABSCESS
     Dosage: UNK
     Route: 048
     Dates: start: 20170322

REACTIONS (1)
  - Arthralgia [Recovered/Resolved]

NARRATIVE: CASE EVENT DATE: 20170328
